FAERS Safety Report 23090389 (Version 1)
Quarter: 2023Q4

REPORT INFORMATION
  Report Type: Spontaneous
  Country: CA (occurrence: CA)
  Receive Date: 20231020
  Receipt Date: 20231020
  Transmission Date: 20240109
  Serious: Yes (Other)
  Sender: FDA-Public Use
  Company Number: CA-FreseniusKabi-FK202316512

PATIENT
  Sex: Male

DRUGS (8)
  1. TOBRAMYCIN [Suspect]
     Active Substance: TOBRAMYCIN
     Indication: Mycobacterium chelonae infection
     Dosage: DOSAGE FORM: NOT SPECIFIED
     Route: 065
  2. TOBRAMYCIN [Suspect]
     Active Substance: TOBRAMYCIN
     Indication: Drug interaction
  3. LINEZOLID [Suspect]
     Active Substance: LINEZOLID
     Indication: Mycobacterium chelonae infection
     Route: 065
  4. LINEZOLID [Suspect]
     Active Substance: LINEZOLID
     Indication: Drug interaction
  5. MOXIFLOXACIN [Suspect]
     Active Substance: MOXIFLOXACIN
     Indication: Mycobacterium chelonae infection
     Dosage: DOSAGE FORM: NOT SPECIFIED
     Route: 065
  6. MOXIFLOXACIN [Suspect]
     Active Substance: MOXIFLOXACIN
     Indication: Drug interaction
  7. AZITHROMYCIN ANHYDROUS [Suspect]
     Active Substance: AZITHROMYCIN ANHYDROUS
     Indication: Mycobacterium chelonae infection
     Route: 065
  8. AZITHROMYCIN ANHYDROUS [Suspect]
     Active Substance: AZITHROMYCIN ANHYDROUS
     Indication: Drug interaction

REACTIONS (2)
  - Ototoxicity [Recovered/Resolved]
  - Thrombocytopenia [Recovered/Resolved]
